FAERS Safety Report 15917262 (Version 1)
Quarter: 2019Q1

REPORT INFORMATION
  Report Type: Spontaneous
  Country: IL (occurrence: IL)
  Receive Date: 20190205
  Receipt Date: 20190205
  Transmission Date: 20190417
  Serious: Yes (Other)
  Sender: FDA-Public Use
  Company Number: IL-SA-2019SA028295

PATIENT
  Age: 77 Year
  Sex: Male

DRUGS (9)
  1. CARDILOC [Concomitant]
     Active Substance: BISOPROLOL FUMARATE
  2. ASPIRIN BAYER [Concomitant]
     Active Substance: ASPIRIN
  3. SIMVACOR [Concomitant]
     Active Substance: SIMVASTATIN
  4. NEPRO HP [Concomitant]
  5. LANTON [Concomitant]
  6. LANTUS [Suspect]
     Active Substance: INSULIN GLARGINE
     Dosage: UNK UNK, UNK
     Route: 065
  7. CALTRATE [Concomitant]
     Active Substance: CALCIUM CARBONATE
  8. AMLOW [Concomitant]
     Active Substance: AMLODIPINE MALEATE
  9. TRILEPTIN [Concomitant]
     Active Substance: OXCARBAZEPINE

REACTIONS (4)
  - Vomiting [Unknown]
  - Nausea [Unknown]
  - Hyperglycaemia [Unknown]
  - Headache [Unknown]
